FAERS Safety Report 4944525-9 (Version None)
Quarter: 2006Q1

REPORT INFORMATION
  Report Type: 
  Country: None (occurrence: None)
  Receive Date: 20060105
  Receipt Date: 20051129
  Transmission Date: 20060701
  Serious: Yes (Other)
  Sender: FDA-Public Use
  Company Number: 2005162631

PATIENT
  Age: 58 Year
  Sex: Male
  Weight: 79.3795 kg

DRUGS (1)
  1. ZMAX [Suspect]
     Indication: SINUSITIS
     Dosage: 2 GRAM (2 GRAM, 1 IN 1 TOTAL), ORAL
     Route: 048
     Dates: start: 20051122, end: 20051122

REACTIONS (1)
  - VERTIGO [None]
